FAERS Safety Report 10469489 (Version 1)
Quarter: 2014Q3

REPORT INFORMATION
  Report Type: Spontaneous
  Country: CA (occurrence: CA)
  Receive Date: 20140923
  Receipt Date: 20140923
  Transmission Date: 20150326
  Serious: Yes (Hospitalization)
  Sender: FDA-Public Use
  Company Number: CA-EISAI MEDICAL RESEARCH-EC-2014-000089

PATIENT
  Age: 28 Year
  Sex: Male

DRUGS (3)
  1. DONEPEZIL [Suspect]
     Active Substance: DONEPEZIL
     Route: 048
  2. DONEPEZIL [Suspect]
     Active Substance: DONEPEZIL
     Indication: OFF LABEL USE
     Route: 048
  3. DONEPEZIL [Suspect]
     Active Substance: DONEPEZIL
     Route: 048

REACTIONS (3)
  - Diarrhoea [Recovered/Resolved]
  - Mania [Recovered/Resolved]
  - Off label use [Recovered/Resolved]
